FAERS Safety Report 9812899 (Version 1)
Quarter: 2014Q1

REPORT INFORMATION
  Report Type: Spontaneous
  Country: US (occurrence: None)
  Receive Date: 20140108
  Receipt Date: 20140108
  Transmission Date: 20141002
  Serious: Yes (Hospitalization)
  Sender: FDA-Public Use
  Company Number: 2013-US-005165

PATIENT
  Age: 73 Year
  Sex: Female
  Weight: 62.1 kg

DRUGS (1)
  1. XYREM [Suspect]
     Indication: INSOMNIA
     Route: 048
     Dates: start: 200704, end: 2007

REACTIONS (2)
  - Abdominal pain upper [None]
  - Gait disturbance [None]
